FAERS Safety Report 17464107 (Version 7)
Quarter: 2025Q4

REPORT INFORMATION
  Report Type: Spontaneous
  Country: JP (occurrence: JP)
  Receive Date: 20200226
  Receipt Date: 20251027
  Transmission Date: 20260118
  Serious: Yes (Hospitalization, Other)
  Sender: BRISTOL-MYERS SQUIBB COMPANY
  Company Number: JP-BRISTOL-MYERS SQUIBB COMPANY-BMS-2020-015597

PATIENT
  Age: 69 Year
  Sex: Male
  Weight: 61.2 kg

DRUGS (9)
  1. OPDIVO [Suspect]
     Active Substance: NIVOLUMAB
     Indication: Gastric cancer
     Dosage: 240 MG
     Route: 041
     Dates: start: 20181220, end: 20200123
  2. OPDIVO [Suspect]
     Active Substance: NIVOLUMAB
     Dosage: 240 MG
     Route: 041
     Dates: start: 20200225
  3. SODIUM FERROUS CITRATE [Concomitant]
     Active Substance: SODIUM FERROUS CITRATE
     Indication: Gastric cancer
     Dosage: 50 MG, Q12H
  4. ECABET SODIUM [Concomitant]
     Active Substance: ECABET SODIUM
     Indication: Gastric cancer
     Dosage: 1.5 G, Q12H
  5. REBAMIPIDE [Concomitant]
     Active Substance: REBAMIPIDE
     Indication: Gastric cancer
     Dosage: 100 MG, Q8H
  6. OXETHAZAINE [Concomitant]
     Active Substance: OXETHAZAINE
     Indication: Gastric cancer
     Dosage: 5 MG, Q8H
  7. NEXIUM [Concomitant]
     Active Substance: ESOMEPRAZOLE MAGNESIUM
     Indication: Gastric cancer
     Dosage: 20 MG, EVERYDAY
  8. METHYLCOBALAMIN [Concomitant]
     Active Substance: METHYLCOBALAMIN
     Indication: Prophylaxis
     Dosage: 0.5 MG, Q8H
  9. KETOPROFEN [Concomitant]
     Active Substance: KETOPROFEN
     Indication: Prophylaxis
     Dosage: 20 MG, PRN

REACTIONS (2)
  - Adrenal insufficiency [Not Recovered/Not Resolved]
  - Hypopituitarism [Recovering/Resolving]

NARRATIVE: CASE EVENT DATE: 20200206
